FAERS Safety Report 19271116 (Version 2)
Quarter: 2021Q3

REPORT INFORMATION
  Report Type: Spontaneous
  Country: US (occurrence: US)
  Receive Date: 20210518
  Receipt Date: 20210705
  Transmission Date: 20211014
  Serious: No
  Sender: FDA-Public Use
  Company Number: US-SA-2021SA162764

PATIENT
  Age: 57 Year
  Sex: Female
  Weight: 78.87 kg

DRUGS (1)
  1. DUPIXENT [Suspect]
     Active Substance: DUPILUMAB
     Indication: ASTHMA
     Dosage: 300 MG / 2ML SUBCUTANEOUSLY EVERY 2 WEEKS
     Route: 058

REACTIONS (2)
  - Arthralgia [Unknown]
  - Product use issue [Unknown]
